FAERS Safety Report 23508104 (Version 1)
Quarter: 2024Q1

REPORT INFORMATION
  Report Type: Report from Study
  Country: CA (occurrence: CA)
  Receive Date: 20240209
  Receipt Date: 20240209
  Transmission Date: 20240410
  Serious: Yes (Other)
  Sender: FDA-Public Use
  Company Number: CA-GLAXOSMITHKLINE-CA2023126020

PATIENT

DRUGS (12)
  1. MEPOLIZUMAB [Suspect]
     Active Substance: MEPOLIZUMAB
     Indication: Asthma
     Dosage: 100 MG, Q4W
     Route: 058
     Dates: start: 20210913
  2. MEPOLIZUMAB [Suspect]
     Active Substance: MEPOLIZUMAB
     Indication: Asthma
     Dosage: 100 MG, Q4W
     Route: 058
     Dates: start: 20210913
  3. MEPOLIZUMAB [Suspect]
     Active Substance: MEPOLIZUMAB
     Indication: Asthma
     Dosage: 100 MG, Q4W
     Route: 058
     Dates: start: 20210913
  4. PNEUMOCOCCAL VACCINE POLYVALENT NOS [Suspect]
     Active Substance: PNEUMOCOCCAL VACCINE POLYVALENT
     Indication: Prophylaxis
  5. PREDNISONE [Concomitant]
     Active Substance: PREDNISONE
     Indication: Dyspnoea
     Dosage: 50 MG
     Dates: start: 20231012, end: 20231016
  6. PREDNISONE [Concomitant]
     Active Substance: PREDNISONE
     Indication: Cough
     Dosage: 50 MG, QD
     Dates: start: 20240119, end: 20240123
  7. PREDNISONE [Concomitant]
     Active Substance: PREDNISONE
     Indication: Infection
  8. PREDNISONE [Concomitant]
     Active Substance: PREDNISONE
     Indication: Pneumonia
  9. AMOXICILLIN\CLAVULANATE POTASSIUM [Concomitant]
     Active Substance: AMOXICILLIN\CLAVULANATE POTASSIUM
     Indication: Dyspnoea
     Dosage: 125 MG
     Dates: start: 20231030, end: 20231103
  10. AMOXICILLIN\CLAVULANATE POTASSIUM [Concomitant]
     Active Substance: AMOXICILLIN\CLAVULANATE POTASSIUM
     Indication: Cough
  11. AMOXICILLIN\CLAVULANATE POTASSIUM [Concomitant]
     Active Substance: AMOXICILLIN\CLAVULANATE POTASSIUM
     Indication: Infection
  12. DOXYCYCLINE [Concomitant]
     Active Substance: DOXYCYCLINE
     Indication: Pneumonia
     Dosage: 100 MG, BID
     Dates: start: 20240119, end: 20240125

REACTIONS (22)
  - Pneumonia [Unknown]
  - Hypotension [Unknown]
  - Dizziness postural [Unknown]
  - Dyspnoea exertional [Unknown]
  - Mouth breathing [Unknown]
  - Sneezing [Unknown]
  - Rhinorrhoea [Unknown]
  - Pyrexia [Unknown]
  - Nasopharyngitis [Unknown]
  - Injection site vesicles [Recovered/Resolved]
  - Burning sensation [Recovered/Resolved]
  - Cough [Recovering/Resolving]
  - Dyspnoea [Recovering/Resolving]
  - Productive cough [Recovering/Resolving]
  - Asthma [Unknown]
  - COVID-19 [Unknown]
  - Influenza [Unknown]
  - Headache [Unknown]
  - Nausea [Unknown]
  - Pyrexia [Unknown]
  - Pain in extremity [Unknown]
  - Infection [Unknown]

NARRATIVE: CASE EVENT DATE: 20230901
